FAERS Safety Report 8922353 (Version 2)
Quarter: 2012Q4

REPORT INFORMATION
  Report Type: 
  Country: JP (occurrence: JP)
  Receive Date: 20121126
  Receipt Date: 20121207
  Transmission Date: 20130627
  Serious: Yes (Hospitalization, Disabling)
  Sender: FDA-Public Use
  Company Number: JP-GE HEALTHCARE MEDICAL DIAGNOSTICS-OMPQ-NO-1211S-1197

PATIENT
  Age: 74 Year
  Sex: Female

DRUGS (8)
  1. OMNIPAQUE [Suspect]
     Indication: RENOVASCULAR HYPERTENSION
     Route: 042
     Dates: start: 20121101, end: 20121101
  2. OMNIPAQUE [Suspect]
     Indication: DIAGNOSTIC PROCEDURE
  3. SOLANAX [Concomitant]
  4. NORVASC [Concomitant]
  5. ECARD [Concomitant]
  6. ALFAROL [Concomitant]
  7. LIPITOR [Concomitant]
  8. PARIET [Concomitant]

REACTIONS (5)
  - Peripheral coldness [Recovered/Resolved]
  - Balance disorder [Recovered/Resolved]
  - Dysstasia [Recovered/Resolved]
  - Shock [Recovered/Resolved]
  - Tremor [Recovered/Resolved]
